FAERS Safety Report 7518950-6 (Version None)
Quarter: 2011Q2

REPORT INFORMATION
  Report Type: 
  Country: None (occurrence: None)
  Receive Date: 20110523
  Receipt Date: 20110510
  Transmission Date: 20111010
  Serious: Yes (Hospitalization)
  Sender: FDA-Public Use
  Company Number: 2011CP000051

PATIENT
  Sex: Female

DRUGS (9)
  1. PROPOFOL [Suspect]
     Dosage: IV
     Route: 042
  2. VANCOMYCIN [Suspect]
     Dosage: IV
     Route: 042
  3. PHOSPHATE ION (NO PREF. NAME) [Suspect]
     Dosage: IV
     Route: 042
  4. ACETAMINOPHEN [Suspect]
     Dosage: IV
     Route: 042
  5. TPN ELECTROLYTES IN PLASTIC CONTAINER [Suspect]
     Dosage: PRN
     Route: 051
  6. NOREPINEPHRINE BITARTRATE [Suspect]
     Dosage: IV
     Route: 042
  7. PHENTOLAMINE MESYLATE [Suspect]
     Dosage: IV
     Route: 042
  8. MEROPENEM [Suspect]
     Dosage: IV
     Route: 042
  9. FUROSEMIDE [Suspect]
     Dosage: IV
     Route: 042

REACTIONS (5)
  - HYPERTENSION [None]
  - DEVICE RELATED SEPSIS [None]
  - OEDEMA [None]
  - ABDOMINAL SEPSIS [None]
  - BLOOD PHOSPHORUS DECREASED [None]
